FAERS Safety Report 7781252-7 (Version None)
Quarter: 2011Q3

REPORT INFORMATION
  Report Type: 
  Country: None (occurrence: None)
  Receive Date: 20110927
  Receipt Date: 20110921
  Transmission Date: 20111222
  Serious: Yes (Other)
  Sender: FDA-Public Use
  Company Number: US-TEVA-300769USA

PATIENT
  Sex: Female
  Weight: 36.32 kg

DRUGS (24)
  1. SERETIDE                           /01420901/ [Concomitant]
     Indication: ASTHMA
  2. METOPROLOL TARTRATE [Concomitant]
     Indication: CARDIAC DISORDER
  3. PROAIR HFA [Suspect]
     Indication: CHRONIC OBSTRUCTIVE PULMONARY DISEASE
  4. PROAIR HFA [Suspect]
     Indication: PRODUCT USED FOR UNKNOWN INDICATION
  5. SERETIDE                           /01420901/ [Concomitant]
     Indication: PRODUCT USED FOR UNKNOWN INDICATION
  6. IPRATROPIUM BROMIDE [Concomitant]
     Indication: ASTHMA
  7. AXOTAL                             /00727001/ [Concomitant]
     Indication: PAIN
  8. IPRATROPIUM BROMIDE [Concomitant]
     Indication: EMPHYSEMA
  9. ETHAMBUTOL HYDROCHLORIDE [Concomitant]
  10. RIFAMPICIN [Concomitant]
  11. CLOPIDOGREL [Concomitant]
     Indication: CARDIAC DISORDER
  12. TERBUTALINE SULFATE [Concomitant]
     Indication: EMPHYSEMA
  13. PROAIR HFA [Suspect]
     Indication: ASTHMA
     Route: 055
  14. PROAIR HFA [Suspect]
     Indication: EMPHYSEMA
  15. SERETIDE                           /01420901/ [Concomitant]
     Indication: EMPHYSEMA
  16. SERETIDE                           /01420901/ [Concomitant]
     Indication: CHRONIC OBSTRUCTIVE PULMONARY DISEASE
  17. TERBUTALINE SULFATE [Concomitant]
     Indication: PRODUCT USED FOR UNKNOWN INDICATION
  18. CLARITHROMYCIN [Concomitant]
  19. CALCIUM CITRATE [Concomitant]
  20. IPRATROPIUM BROMIDE [Concomitant]
     Indication: CHRONIC OBSTRUCTIVE PULMONARY DISEASE
  21. IPRATROPIUM BROMIDE [Concomitant]
     Indication: PRODUCT USED FOR UNKNOWN INDICATION
  22. TERBUTALINE SULFATE [Concomitant]
     Indication: ASTHMA
  23. TERBUTALINE SULFATE [Concomitant]
     Indication: CHRONIC OBSTRUCTIVE PULMONARY DISEASE
  24. RAMIPRIL [Concomitant]
     Indication: CARDIAC DISORDER

REACTIONS (3)
  - MYOCARDIAL INFARCTION [None]
  - DRUG INEFFECTIVE [None]
  - HYPERTROPHIC CARDIOMYOPATHY [None]
